FAERS Safety Report 4686208-9 (Version None)
Quarter: 2005Q2

REPORT INFORMATION
  Report Type: 
  Country: None (occurrence: None)
  Receive Date: 20050606
  Receipt Date: 20050523
  Transmission Date: 20051028
  Serious: Yes (Hospitalization, Other)
  Sender: FDA-Public Use
  Company Number: US_0504116554

PATIENT
  Age: 69 Year
  Sex: Female
  Weight: 60.782 kg

DRUGS (4)
  1. FORTEO [Suspect]
     Indication: OSTEOPOROSIS
     Dosage: 20 UG DAY
     Dates: start: 20050321, end: 20050401
  2. CELECOXIB [Concomitant]
  3. ATENOLOL [Concomitant]
  4. CYANCOBALAMIN [Concomitant]

REACTIONS (6)
  - FALL [None]
  - MYOCARDIAL INFARCTION [None]
  - NERVOUSNESS [None]
  - PAIN IN EXTREMITY [None]
  - PHARMACEUTICAL PRODUCT COMPLAINT [None]
  - VISUAL FIELD DEFECT [None]
